FAERS Safety Report 9696825 (Version 3)
Quarter: 2014Q1

REPORT INFORMATION
  Report Type: Spontaneous
  Country: US (occurrence: US)
  Receive Date: 20131119
  Receipt Date: 20140120
  Transmission Date: 20141002
  Serious: Yes (Other)
  Sender: FDA-Public Use
  Company Number: US-RB-059583-13

PATIENT
  Age: 52 Year
  Sex: Female

DRUGS (4)
  1. SUBOXONE FILM [Suspect]
     Indication: DRUG DEPENDENCE
     Dosage: SUBOXONE FILM; THE PATIENT RECEIVED 2 INDUCTION DOSES OF 1/3 STRIPS
     Route: 060
     Dates: start: 20131001, end: 20131001
  2. LORAZEPAM [Concomitant]
     Indication: ANXIETY
     Dosage: DOSING DETAILS UNKNOWN; TAKING DAILY
     Route: 048
     Dates: start: 20131003, end: 201311
  3. XANAX [Concomitant]
     Indication: ANXIETY
     Dosage: DOSING DETAILS UNKNOWN; TAKING DAILY
     Route: 048
     Dates: start: 201311
  4. XANAX [Concomitant]
     Dosage: USING TWICE DAILY AS NEEDED
     Route: 065
     Dates: start: 201401

REACTIONS (15)
  - Suicidal ideation [Recovered/Resolved]
  - Off label use [Recovered/Resolved]
  - Therapy naive [Recovered/Resolved]
  - Wrong technique in drug usage process [Recovered/Resolved]
  - Euphoric mood [Recovered/Resolved]
  - Vomiting [Recovered/Resolved]
  - Abdominal pain upper [Recovering/Resolving]
  - Decreased appetite [Recovering/Resolving]
  - Constipation [Recovering/Resolving]
  - Lethargy [Recovering/Resolving]
  - Nausea [Recovering/Resolving]
  - Headache [Recovering/Resolving]
  - Depression [Recovering/Resolving]
  - Anxiety [Recovering/Resolving]
  - Insomnia [Recovering/Resolving]
